FAERS Safety Report 10770800 (Version 1)
Quarter: 2015Q1

REPORT INFORMATION
  Report Type: Spontaneous
  Country: DE (occurrence: DE)
  Receive Date: 20150206
  Receipt Date: 20150206
  Transmission Date: 20150721
  Serious: Yes (Death, Other)
  Sender: FDA-Public Use
  Company Number: PHHY2015DE014119

PATIENT
  Age: 18 Month
  Sex: Female

DRUGS (1)
  1. PREDNISONE. [Suspect]
     Active Substance: PREDNISONE
     Indication: ACUTE LYMPHOCYTIC LEUKAEMIA
     Route: 065

REACTIONS (3)
  - Mucosal inflammation [Unknown]
  - Multi-organ failure [Fatal]
  - Febrile neutropenia [Unknown]
